FAERS Safety Report 11755057 (Version 5)
Quarter: 2016Q2

REPORT INFORMATION
  Report Type: Report from Study
  Country: JP (occurrence: JP)
  Receive Date: 20151119
  Receipt Date: 20160616
  Transmission Date: 20160815
  Serious: Yes (Death, Hospitalization)
  Sender: FDA-Public Use
  Company Number: JP-VIFOR (INTERNATIONAL) INC.-VIT-2015-03154

PATIENT
  Age: 94 Year
  Sex: Male
  Weight: 45.2 kg

DRUGS (5)
  1. MIRCERA [Suspect]
     Active Substance: METHOXY POLYETHYLENE GLYCOL-EPOETIN BETA
     Indication: NEPHROGENIC ANAEMIA
     Route: 058
     Dates: start: 20131121, end: 20141022
  2. AMLODIN [Concomitant]
     Active Substance: AMLODIPINE BESYLATE
     Route: 048
     Dates: start: 20141030, end: 20151022
  3. SOSEGON [Concomitant]
     Active Substance: PENTAZOCINE
     Route: 065
     Dates: start: 20131028, end: 20131028
  4. MIRCERA [Suspect]
     Active Substance: METHOXY POLYETHYLENE GLYCOL-EPOETIN BETA
     Route: 058
     Dates: start: 20130417, end: 20131002
  5. DORMICUM [Concomitant]
     Active Substance: MIDAZOLAM\MIDAZOLAM HYDROCHLORIDE
     Route: 065

REACTIONS (4)
  - Diverticulum intestinal haemorrhagic [Recovering/Resolving]
  - Death [Fatal]
  - Cataract [Unknown]
  - Large intestine polyp [Unknown]

NARRATIVE: CASE EVENT DATE: 20131026
